FAERS Safety Report 13721681 (Version 1)
Quarter: 2017Q3

REPORT INFORMATION
  Report Type: Spontaneous
  Country: US (occurrence: US)
  Receive Date: 20170706
  Receipt Date: 20170706
  Transmission Date: 20171127
  Serious: Yes (Hospitalization)
  Sender: FDA-Public Use
  Company Number: None

PATIENT
  Age: 52 Year
  Sex: Male

DRUGS (21)
  1. OXYCODONE [Concomitant]
     Active Substance: OXYCODONE
  2. BUMEX [Concomitant]
     Active Substance: BUMETANIDE
  3. DITROPAN [Concomitant]
     Active Substance: OXYBUTYNIN CHLORIDE
  4. TYLENOL [Concomitant]
     Active Substance: ACETAMINOPHEN
  5. SOFOSBUVIR 400 GILEAD SCIENCES, INC. [Suspect]
     Active Substance: SOFOSBUVIR
     Indication: HEPATITIS C
     Route: 048
     Dates: start: 20160630, end: 20161215
  6. DACLATASVIR 60 [Suspect]
     Active Substance: DACLATASVIR
     Indication: HEPATITIS C
     Route: 048
     Dates: start: 20160630, end: 20161215
  7. FENTANYL. [Concomitant]
     Active Substance: FENTANYL
  8. ALBUMIN [Concomitant]
     Active Substance: ALBUMIN HUMAN
  9. PROTONIX [Concomitant]
     Active Substance: PANTOPRAZOLE SODIUM
  10. METOLAZONE. [Concomitant]
     Active Substance: METOLAZONE
  11. SYMBICORT [Concomitant]
     Active Substance: BUDESONIDE\FORMOTEROL FUMARATE DIHYDRATE
  12. LASIX [Concomitant]
     Active Substance: FUROSEMIDE
  13. RIFAXIMIN [Concomitant]
     Active Substance: RIFAXIMIN
  14. ALBUTEROL. [Concomitant]
     Active Substance: ALBUTEROL
  15. POTASSIUM CHLORIDE. [Concomitant]
     Active Substance: POTASSIUM CHLORIDE
  16. CIPRO [Concomitant]
     Active Substance: CIPROFLOXACIN HYDROCHLORIDE
  17. LACTULOSE. [Concomitant]
     Active Substance: LACTULOSE
  18. INDERAL [Concomitant]
     Active Substance: PROPRANOLOL HYDROCHLORIDE
  19. ROCEPHIN [Concomitant]
     Active Substance: CEFTRIAXONE SODIUM
  20. ALDACTONE [Concomitant]
     Active Substance: SPIRONOLACTONE
  21. CLAFORAN [Concomitant]
     Active Substance: CEFOTAXIME SODIUM

REACTIONS (4)
  - Hyperkalaemia [None]
  - Ascites [None]
  - Peritonitis bacterial [None]
  - Dyspnoea [None]

NARRATIVE: CASE EVENT DATE: 20161018
